FAERS Safety Report 13442508 (Version 1)
Quarter: 2017Q2

REPORT INFORMATION
  Report Type: Spontaneous
  Country: GB (occurrence: GB)
  Receive Date: 20170414
  Receipt Date: 20170414
  Transmission Date: 20170830
  Serious: Yes (Death)
  Sender: FDA-Public Use
  Company Number: GB-ASTRAZENECA-2017SE38298

PATIENT
  Age: 34 Year
  Sex: Male
  Weight: 76.4 kg

DRUGS (2)
  1. QUETIAPINE. [Suspect]
     Active Substance: QUETIAPINE
     Route: 048
     Dates: end: 20150713
  2. DIAZEPAM. [Concomitant]
     Active Substance: DIAZEPAM
     Dosage: LOW THERAPEUTIC

REACTIONS (1)
  - Intentional self-injury [Fatal]
